FAERS Safety Report 6742531-5 (Version None)
Quarter: 2010Q2

REPORT INFORMATION
  Report Type: 
  Country: None (occurrence: None)
  Receive Date: 20100526
  Receipt Date: 20100517
  Transmission Date: 20101027
  Serious: Yes (Hospitalization)
  Sender: FDA-Public Use
  Company Number: BR-ABBOTT-10P-020-0642124-00

PATIENT
  Sex: Female
  Weight: 15 kg

DRUGS (10)
  1. RITONAVIR ORAL SOLUTION [Suspect]
     Indication: HIV INFECTION
     Route: 048
     Dates: start: 20100113
  2. DARUNAVIR [Concomitant]
     Indication: HIV INFECTION
     Route: 048
     Dates: start: 20100324
  3. DARUNAVIR [Concomitant]
     Route: 048
     Dates: start: 20100113, end: 20100207
  4. DARUNAVIR [Concomitant]
     Route: 048
     Dates: start: 20100208, end: 20100208
  5. DARUNAVIR [Concomitant]
     Route: 048
     Dates: start: 20100208, end: 20100208
  6. DARUNAVIR [Concomitant]
     Route: 048
     Dates: start: 20100209, end: 20100323
  7. ZIAGEN [Concomitant]
     Indication: ANTIRETROVIRAL THERAPY
     Route: 048
     Dates: start: 20090706, end: 20100112
  8. EPIVIR [Concomitant]
     Indication: ANTIRETROVIRAL THERAPY
     Route: 048
     Dates: start: 20090706
  9. EFAVIRENZ [Concomitant]
     Indication: ANTIRETROVIRAL THERAPY
     Route: 048
     Dates: start: 20080721, end: 20100112
  10. ZIDOVUDINA AZT [Concomitant]
     Route: 048
     Dates: start: 20100113

REACTIONS (1)
  - ASTHMATIC CRISIS [None]
